FAERS Safety Report 5802041-6 (Version None)
Quarter: 2008Q3

REPORT INFORMATION
  Report Type: 
  Country: None (occurrence: None)
  Receive Date: 20080702
  Receipt Date: 20080626
  Transmission Date: 20090109
  Serious: Yes (Other)
  Sender: FDA-Public Use
  Company Number: GXKR2008DE05854

PATIENT
  Sex: Female

DRUGS (1)
  1. METOHEXAL SUCC (NGX) (METOPROLOL) EXTENDED RELEASE TABLET, 95MG [Suspect]
     Dosage: 95 MG, ORAL
     Route: 048

REACTIONS (2)
  - ANGIOEDEMA [None]
  - TONGUE OEDEMA [None]
